FAERS Safety Report 8170480-7 (Version None)
Quarter: 2012Q1

REPORT INFORMATION
  Report Type: 
  Country: None (occurrence: None)
  Receive Date: 20120228
  Receipt Date: 20120214
  Transmission Date: 20120608
  Serious: Yes (Hospitalization)
  Sender: FDA-Public Use
  Company Number: IT-CELGENEUS-083-21880-12021617

PATIENT
  Sex: Female
  Weight: 72 kg

DRUGS (5)
  1. REVLIMID [Suspect]
     Indication: MULTIPLE MYELOMA
     Dosage: 25 MILLIGRAM
     Route: 048
     Dates: start: 20100513
  2. DEXAMETHASONE [Suspect]
     Indication: MULTIPLE MYELOMA
     Route: 048
     Dates: start: 20100513, end: 20100524
  3. DEXAMETHASONE [Suspect]
     Route: 048
     Dates: start: 20100525, end: 20100609
  4. DEXAMETHASONE [Suspect]
     Route: 048
     Dates: start: 20111210, end: 20120109
  5. REVLIMID [Suspect]
     Dosage: 25 MILLIGRAM
     Route: 048
     Dates: start: 20111227, end: 20120116

REACTIONS (1)
  - DIPLOPIA [None]
